FAERS Safety Report 15146177 (Version 1)
Quarter: 2018Q3

REPORT INFORMATION
  Report Type: Spontaneous
  Country: KR (occurrence: KR)
  Receive Date: 20180714
  Receipt Date: 20180714
  Transmission Date: 20181010
  Serious: Yes (Death, Other)
  Sender: FDA-Public Use
  Company Number: KR-009507513-1807KOR004484

PATIENT
  Sex: Female

DRUGS (85)
  1. PLASMASOL (PENTASTARCH) [Concomitant]
     Dosage: UNK
     Dates: start: 20180622, end: 20180624
  2. MORPHINE HYDROCHLORIDE [Concomitant]
     Active Substance: MORPHINE HYDROCHLORIDE
     Dosage: UNK
     Dates: start: 20180609, end: 20180615
  3. DEXTROSE. [Concomitant]
     Active Substance: DEXTROSE
     Dosage: UNK
     Dates: start: 20180615
  4. DEXTROSE. [Concomitant]
     Active Substance: DEXTROSE
     Dosage: UNK
     Dates: start: 20180616
  5. POTASSIUM (UNSPECIFIED) (+) SODIUM (UNSPECIFIED) [Concomitant]
     Dosage: UNK
     Dates: start: 20180608, end: 20180613
  6. WINUF [Concomitant]
     Dosage: UNK
     Dates: start: 20180615, end: 20180617
  7. LASIX [Concomitant]
     Active Substance: FUROSEMIDE
     Dosage: UNK
     Dates: start: 20180622, end: 20180627
  8. CORTISOLU [Concomitant]
     Active Substance: HYDROCORTISONE SODIUM SUCCINATE
     Dosage: UNK
     Dates: start: 20180617
  9. TRANEXAMIC ACID. [Concomitant]
     Active Substance: TRANEXAMIC ACID
     Dosage: UNK
     Dates: start: 20180618, end: 20180626
  10. DUROGESIC [Concomitant]
     Active Substance: FENTANYL
     Dosage: 50 MCG/H 21 CM2
     Dates: start: 20180608, end: 20180628
  11. MACPERAN [Concomitant]
     Active Substance: METOCLOPRAMIDE HYDROCHLORIDE
     Dosage: UNK
     Dates: start: 20180615, end: 20180622
  12. MACPERAN [Concomitant]
     Active Substance: METOCLOPRAMIDE HYDROCHLORIDE
     Dosage: UNK
     Dates: start: 20180617, end: 20180623
  13. MORPHINE HYDROCHLORIDE [Concomitant]
     Active Substance: MORPHINE HYDROCHLORIDE
     Dosage: UNK
     Dates: start: 20180618, end: 20180619
  14. CURAN [Concomitant]
     Active Substance: RANITIDINE HYDROCHLORIDE
     Dosage: UNK
     Dates: start: 20180607, end: 20180611
  15. DEXTROSE (+) SODIUM CHLORIDE [Concomitant]
     Dosage: UNK
     Dates: start: 20180607, end: 20180615
  16. DEXTROSE. [Concomitant]
     Active Substance: DEXTROSE
     Dosage: UNK
     Dates: start: 20180620, end: 20180626
  17. OLIMEL N4E [Concomitant]
     Dosage: UNK
     Dates: start: 20180608, end: 20180615
  18. ATIVAN [Concomitant]
     Active Substance: LORAZEPAM
     Dosage: UNK
     Dates: start: 20180610, end: 20180628
  19. ALBUMIN HUMAN [Concomitant]
     Active Substance: ALBUMIN HUMAN
     Dosage: UNK
     Dates: start: 20180612, end: 20180613
  20. DEXTROSE (+) SODIUM CHLORIDE [Concomitant]
     Dosage: UNK
     Dates: start: 20180624, end: 20180625
  21. TAZOPERAN [Concomitant]
     Dosage: UNK
     Dates: start: 20180608, end: 20180617
  22. SPATAM [Concomitant]
     Dosage: UNK
     Dates: start: 20180607
  23. MORPHINE HYDROCHLORIDE [Concomitant]
     Active Substance: MORPHINE HYDROCHLORIDE
     Dosage: UNK
     Dates: start: 20180615, end: 20180620
  24. CRAVIT [Concomitant]
     Active Substance: LEVOFLOXACIN
     Dosage: UNK
     Dates: start: 20180607, end: 20180615
  25. DEXTROSE. [Concomitant]
     Active Substance: DEXTROSE
     Dosage: UNK
     Dates: start: 20180607, end: 20180625
  26. DEXTROSE. [Concomitant]
     Active Substance: DEXTROSE
     Dosage: UNK
  27. DEXTROSE. [Concomitant]
     Active Substance: DEXTROSE
     Dosage: UNK
     Dates: start: 20180607, end: 20180630
  28. TAMIPOOL [Concomitant]
     Active Substance: VITAMINS
     Dosage: UNK
     Dates: start: 20180608, end: 20180617
  29. LASIX [Concomitant]
     Active Substance: FUROSEMIDE
     Dosage: UNK
     Dates: start: 20180614, end: 20180628
  30. MIDAZOLAM BUKWANG [Concomitant]
     Dosage: UNK
     Dates: start: 20180618
  31. PERIDOL (CORN) [Concomitant]
     Dosage: UNK
     Dates: start: 20180621
  32. VANCOCIN [Concomitant]
     Active Substance: VANCOMYCIN HYDROCHLORIDE
     Dosage: UNK
     Dates: start: 20180625
  33. DUROGESIC [Concomitant]
     Active Substance: FENTANYL
     Dosage: 25 MCG/H 10 CM2
     Dates: start: 20180608, end: 20180611
  34. PHOSTEN [Concomitant]
     Dosage: UNK
     Dates: start: 20180607
  35. MORPHINE HYDROCHLORIDE [Concomitant]
     Active Substance: MORPHINE HYDROCHLORIDE
     Dosage: UNK
  36. DEXTROSE (+) SODIUM CHLORIDE [Concomitant]
     Dosage: UNK
     Dates: start: 20180620
  37. DEXTROSE. [Concomitant]
     Active Substance: DEXTROSE
     Dosage: UNK
     Dates: start: 20180610
  38. HEPARIN SODIUM. [Concomitant]
     Active Substance: HEPARIN SODIUM
     Dosage: UNK
     Dates: start: 20180618
  39. AMBROXOL ILDONG [Concomitant]
     Dosage: UNK
     Dates: start: 20180608, end: 20180621
  40. WINUF [Concomitant]
     Dosage: UNK
     Dates: start: 20180614
  41. SODIUM CHLORIDE. [Concomitant]
     Active Substance: SODIUM CHLORIDE
     Dosage: UNK
     Dates: start: 20180614, end: 20180615
  42. NEXIUM I.V. [Concomitant]
     Active Substance: ESOMEPRAZOLE SODIUM
     Dosage: UNK
     Dates: start: 20180617, end: 20180618
  43. MEROPEN [Concomitant]
     Active Substance: MEROPENEM
     Dosage: UNK
     Dates: start: 20180626
  44. KEYTRUDA [Suspect]
     Active Substance: PEMBROLIZUMAB
     Dosage: UNK, Q3W
     Dates: start: 20180522
  45. SANCUSO [Concomitant]
     Active Substance: GRANISETRON
     Dosage: UNK
     Dates: start: 20180612, end: 20180619
  46. PLASMASOL (PENTASTARCH) [Concomitant]
     Dosage: UNK
     Dates: start: 20180607
  47. TAZOPERAN [Concomitant]
     Dosage: UNK
     Dates: start: 20180607
  48. DEXTROSE. [Concomitant]
     Active Substance: DEXTROSE
     Dosage: UNK
     Dates: start: 20180608, end: 20180623
  49. DEXTROSE. [Concomitant]
     Active Substance: DEXTROSE
     Dosage: UNK
     Dates: start: 20180617
  50. AMBROXOL ILDONG [Concomitant]
     Dosage: UNK
     Dates: start: 20180611
  51. NEXIUM I.V. [Concomitant]
     Active Substance: ESOMEPRAZOLE SODIUM
     Dosage: UNK
     Dates: start: 20180619
  52. TRANEXAMIC ACID. [Concomitant]
     Active Substance: TRANEXAMIC ACID
     Dosage: UNK
     Dates: start: 20180619
  53. CURAN [Concomitant]
     Active Substance: RANITIDINE HYDROCHLORIDE
     Dosage: UNK
     Dates: start: 20180612, end: 20180613
  54. CURAN [Concomitant]
     Active Substance: RANITIDINE HYDROCHLORIDE
     Dosage: UNK
     Dates: start: 20180614
  55. DEXTROSE (+) SODIUM CHLORIDE [Concomitant]
     Dosage: UNK
     Dates: start: 20180608, end: 20180621
  56. DEXTROSE. [Concomitant]
     Active Substance: DEXTROSE
     Dosage: UNK
     Dates: start: 20180612, end: 20180614
  57. DEXTROSE. [Concomitant]
     Active Substance: DEXTROSE
     Dosage: UNK
     Dates: start: 20180627, end: 20180629
  58. DEXTROSE. [Concomitant]
     Active Substance: DEXTROSE
     Dosage: UNK
     Dates: start: 20180608, end: 20180621
  59. AMBROXOL ILDONG [Concomitant]
     Dosage: UNK
     Dates: start: 20180609, end: 20180629
  60. AMBROXOL ILDONG [Concomitant]
     Dosage: UNK
     Dates: start: 20180616, end: 20180630
  61. NEXIUM I.V. [Concomitant]
     Active Substance: ESOMEPRAZOLE SODIUM
     Dosage: UNK
     Dates: start: 20180615
  62. SODIUM BICARBONATE. [Concomitant]
     Active Substance: SODIUM BICARBONATE
     Dosage: UNK
     Dates: start: 20180624
  63. TAZOPERAN [Concomitant]
     Dosage: UNK
     Dates: start: 20180616, end: 20180620
  64. MORPHINE HYDROCHLORIDE [Concomitant]
     Active Substance: MORPHINE HYDROCHLORIDE
     Dosage: UNK
     Dates: start: 20180607, end: 20180610
  65. MORPHINE HYDROCHLORIDE [Concomitant]
     Active Substance: MORPHINE HYDROCHLORIDE
     Dosage: UNK
     Dates: start: 20180614
  66. MORPHINE HYDROCHLORIDE [Concomitant]
     Active Substance: MORPHINE HYDROCHLORIDE
     Dosage: UNK
     Dates: start: 20180619, end: 20180630
  67. HEPARIN SODIUM. [Concomitant]
     Active Substance: HEPARIN SODIUM
     Dosage: UNK
     Dates: start: 20180607, end: 20180626
  68. FURTMAN [Concomitant]
     Dosage: UNK
     Dates: start: 20180608, end: 20180617
  69. ATIVAN [Concomitant]
     Active Substance: LORAZEPAM
     Dosage: UNK
     Dates: start: 20180611, end: 20180629
  70. LASIX [Concomitant]
     Active Substance: FUROSEMIDE
     Dosage: UNK
     Dates: start: 20180621
  71. CORTISOLU [Concomitant]
     Active Substance: HYDROCORTISONE SODIUM SUCCINATE
     Dosage: UNK
     Dates: start: 20180615, end: 20180616
  72. HEPA?MERZ [Concomitant]
     Dosage: UNK
     Dates: start: 20180619, end: 20180620
  73. VANCOCIN [Concomitant]
     Active Substance: VANCOMYCIN HYDROCHLORIDE
     Dosage: UNK
     Dates: start: 20180624
  74. KEYTRUDA [Suspect]
     Active Substance: PEMBROLIZUMAB
     Indication: GASTRIC CANCER
     Dosage: UNK, Q3W
     Dates: start: 20180615
  75. MACPERAN [Concomitant]
     Active Substance: METOCLOPRAMIDE HYDROCHLORIDE
     Dosage: UNK
     Dates: start: 20180607, end: 20180608
  76. MACPERAN [Concomitant]
     Active Substance: METOCLOPRAMIDE HYDROCHLORIDE
     Dosage: UNK
     Dates: start: 20180618
  77. MORPHINE HYDROCHLORIDE [Concomitant]
     Active Substance: MORPHINE HYDROCHLORIDE
     Dosage: UNK
     Dates: start: 20180617
  78. DEXTROSE. [Concomitant]
     Active Substance: DEXTROSE
     Dosage: UNK
     Dates: start: 20180619, end: 20180629
  79. DEXTROSE. [Concomitant]
     Active Substance: DEXTROSE
     Dosage: UNK
     Dates: start: 20180624, end: 20180625
  80. HEPARIN SODIUM. [Concomitant]
     Active Substance: HEPARIN SODIUM
     Dosage: UNK
     Dates: start: 20180615
  81. POTASSIUM (UNSPECIFIED) (+) SODIUM (UNSPECIFIED) [Concomitant]
     Dosage: UNK
     Dates: start: 20180610, end: 20180615
  82. TAMIPOOL [Concomitant]
     Active Substance: VITAMINS
     Dosage: UNK
     Dates: start: 20180614
  83. FURTMAN [Concomitant]
     Dosage: UNK
     Dates: start: 20180614
  84. MEROPEN [Concomitant]
     Active Substance: MEROPENEM
     Dosage: UNK
     Dates: start: 20180620, end: 20180625
  85. SODIUM BICARBONATE. [Concomitant]
     Active Substance: SODIUM BICARBONATE
     Dosage: UNK
     Dates: start: 20180625

REACTIONS (4)
  - Gastrointestinal tube insertion [Unknown]
  - Death [Fatal]
  - Product use in unapproved indication [Unknown]
  - Transfusion [Unknown]

NARRATIVE: CASE EVENT DATE: 20180522
